FAERS Safety Report 4487712-9 (Version None)
Quarter: 2004Q4

REPORT INFORMATION
  Report Type: 
  Country: None (occurrence: None)
  Receive Date: 20041027
  Receipt Date: 20041027
  Transmission Date: 20050328
  Serious: Yes (Hospitalization)
  Sender: FDA-Public Use
  Company Number: None

PATIENT
  Age: 81 Year
  Sex: Male
  Weight: 91.173 kg

DRUGS (7)
  1. CARBAMAZEPINE [Suspect]
     Indication: PAIN IN EXTREMITY
     Dosage: 200 MG 1 1/2 TABS BID
     Dates: start: 20040716
  2. VICODIN [Concomitant]
  3. ISOSOBIDE DINITRATE [Concomitant]
  4. DITIAZEM [Concomitant]
  5. LISINOPRIL [Concomitant]
  6. GLIPIZIDE [Concomitant]
  7. SIMVASTATIN [Concomitant]

REACTIONS (1)
  - HYPONATRAEMIA [None]
